FAERS Safety Report 9272469 (Version 1)
Quarter: 2013Q2

REPORT INFORMATION
  Report Type: Spontaneous
  Country: US (occurrence: US)
  Receive Date: 20130506
  Receipt Date: 20130506
  Transmission Date: 20140414
  Serious: No
  Sender: FDA-Public Use
  Company Number: US-ASTRAZENECA-2012SE76419

PATIENT
  Sex: 0

DRUGS (1)
  1. PRILOSEC OTC [Suspect]
     Route: 048

REACTIONS (1)
  - Adverse event [Unknown]
